FAERS Safety Report 24802578 (Version 4)
Quarter: 2025Q1

REPORT INFORMATION
  Report Type: Spontaneous
  Country: CO (occurrence: CO)
  Receive Date: 20250103
  Receipt Date: 20250127
  Transmission Date: 20250409
  Serious: Yes (Hospitalization, Other)
  Sender: SANOFI AVENTIS
  Company Number: CO-SA-SAC20221007000269

PATIENT
  Age: 38 Year
  Sex: Female
  Weight: 52 kg

DRUGS (5)
  1. LEMTRADA [Suspect]
     Active Substance: ALEMTUZUMAB
     Indication: Multiple sclerosis
     Route: 042
     Dates: start: 20210813, end: 20210817
  2. LEMTRADA [Suspect]
     Active Substance: ALEMTUZUMAB
     Route: 042
     Dates: start: 2022, end: 2022
  3. VITAMIN D NOS [Concomitant]
     Active Substance: CHOLECALCIFEROL\ERGOCALCIFEROL
     Indication: Multiple sclerosis
     Dosage: 7000 IU, QD
     Route: 048
  4. VITAMIN D NOS [Concomitant]
     Active Substance: CHOLECALCIFEROL\ERGOCALCIFEROL
     Dosage: 1 DF, QD
     Route: 048
  5. IBUPROFEN [Concomitant]
     Active Substance: IBUPROFEN
     Indication: Inflammatory pain
     Dosage: 500 MG, QD
     Route: 048

REACTIONS (18)
  - Choking sensation [Not Recovered/Not Resolved]
  - Hyperhidrosis [Not Recovered/Not Resolved]
  - Condition aggravated [Not Recovered/Not Resolved]
  - Syncope [Recovered/Resolved]
  - Graves^ disease [Not Recovered/Not Resolved]
  - Hyperthyroidism [Not Recovered/Not Resolved]
  - Insomnia [Not Recovered/Not Resolved]
  - Tachycardia [Not Recovered/Not Resolved]
  - Headache [Recovered/Resolved]
  - Weight decreased [Not Recovered/Not Resolved]
  - Fall [Unknown]
  - Tremor [Not Recovered/Not Resolved]
  - Aphasia [Unknown]
  - Laboratory test abnormal [Unknown]
  - Quality of life decreased [Unknown]
  - Sleep disorder due to a general medical condition [Unknown]
  - Fatigue [Unknown]
  - Rash pruritic [Unknown]

NARRATIVE: CASE EVENT DATE: 20210101
